FAERS Safety Report 6871174-8 (Version None)
Quarter: 2010Q3

REPORT INFORMATION
  Report Type: 
  Country: None (occurrence: None)
  Receive Date: 20100723
  Receipt Date: 20100712
  Transmission Date: 20110219
  Serious: Yes (Death)
  Sender: FDA-Public Use
  Company Number: US-PFIZER INC-2010020895

PATIENT
  Sex: Male
  Weight: 74.8 kg

DRUGS (3)
  1. CHANTIX [Suspect]
     Indication: SMOKING CESSATION THERAPY
     Dosage: UNK, FOR APPROXIMATELY ONE WEEK
     Route: 048
     Dates: start: 20080421, end: 20080401
  2. HYDROCODONE [Concomitant]
     Dosage: UNK
     Dates: end: 20080427
  3. CLINDAMYCIN [Concomitant]
     Dosage: UNK
     Dates: end: 20080427

REACTIONS (1)
  - COMPLETED SUICIDE [None]
